FAERS Safety Report 25182656 (Version 1)
Quarter: 2025Q2

REPORT INFORMATION
  Report Type: Spontaneous
  Country: IT (occurrence: IT)
  Receive Date: 20250410
  Receipt Date: 20250410
  Transmission Date: 20250717
  Serious: Yes (Other)
  Sender: RANBAXY
  Company Number: IT-SUN PHARMACEUTICAL INDUSTRIES LTD-2025R1-502439

PATIENT
  Age: 35 Year
  Sex: Female

DRUGS (1)
  1. METHYLDOPA [Suspect]
     Active Substance: METHYLDOPA
     Indication: Gestational hypertension
     Route: 065

REACTIONS (3)
  - Drug ineffective [Unknown]
  - Exposure during pregnancy [Unknown]
  - Premature delivery [Unknown]
